FAERS Safety Report 8383519-0 (Version None)
Quarter: 2012Q1

REPORT INFORMATION
  Report Type: 
  Country: None (occurrence: None)
  Receive Date: 20120323
  Receipt Date: 20110420
  Transmission Date: 20120608
  Serious: Yes (Other)
  Sender: FDA-Public Use
  Company Number: 163-21880-11032541

PATIENT
  Age: 85 Year
  Sex: Female
  Weight: 64.8644 kg

DRUGS (9)
  1. REVLIMID [Suspect]
     Indication: MULTIPLE MYELOMA
     Dosage: 10 MG, QD X 21 DAYS, PO
     Route: 048
     Dates: start: 20110117
  2. BENTYL (DICLOVERINE HYDROCHLORIDE) [Concomitant]
  3. CELEXA [Concomitant]
  4. SIMVASTATIN [Concomitant]
  5. BONIVA [Concomitant]
  6. TRAMADOL HCL [Concomitant]
  7. OMEPRAZOLE [Concomitant]
  8. NAMENDA [Concomitant]
  9. LORTAB [Concomitant]

REACTIONS (2)
  - RASH [None]
  - LIP SWELLING [None]
